FAERS Safety Report 24451085 (Version 3)
Quarter: 2024Q4

REPORT INFORMATION
  Report Type: Spontaneous
  Country: US (occurrence: US)
  Receive Date: 20241017
  Receipt Date: 20241128
  Transmission Date: 20250115
  Serious: Yes (Other)
  Sender: BRISTOL-MYERS SQUIBB COMPANY
  Company Number: US-BRISTOL-MYERS SQUIBB COMPANY-2024-161628

PATIENT
  Age: 81 Year
  Sex: Male

DRUGS (1)
  1. INREBIC [Suspect]
     Active Substance: FEDRATINIB HYDROCHLORIDE
     Indication: Product used for unknown indication
     Dosage: DOSE : 100MG;     FREQ : TAKE 3 CAPSULES BY MOUTH EVERY DAY
     Route: 048

REACTIONS (2)
  - Cardiac disorder [Unknown]
  - COVID-19 [Unknown]

NARRATIVE: CASE EVENT DATE: 20240920
